FAERS Safety Report 15692028 (Version 3)
Quarter: 2019Q2

REPORT INFORMATION
  Report Type: Report from Study
  Country: US (occurrence: US)
  Receive Date: 20181205
  Receipt Date: 20190508
  Transmission Date: 20190711
  Serious: No
  Sender: FDA-Public Use
  Company Number: PHEH2018US050653

PATIENT
  Sex: Female

DRUGS (1)
  1. COSENTYX [Suspect]
     Active Substance: SECUKINUMAB
     Indication: PSORIASIS
     Dosage: 300 MG, QMO
     Route: 058

REACTIONS (5)
  - Psoriasis [Unknown]
  - Drug ineffective [Unknown]
  - Weight decreased [Unknown]
  - Therapeutic product effect incomplete [Unknown]
  - Macule [Not Recovered/Not Resolved]
